FAERS Safety Report 9292578 (Version 1)
Quarter: 2013Q1

REPORT INFORMATION
  Report Type: Spontaneous
  Country: US (occurrence: None)
  Receive Date: 20121212
  Receipt Date: 20121212
  Transmission Date: 20140127
  Serious: No
  Sender: FDA-Public Use
  Company Number: 1211USA000619

PATIENT
  Age: 49 Year
  Sex: Female

DRUGS (2)
  1. PEGINTRON [Suspect]
     Indication: HEPATITIS C
     Dates: start: 20120316, end: 20120428
  2. RIBAVIRIN (RIBAVIRIN) [Suspect]
     Dates: start: 20120316, end: 20120428

REACTIONS (2)
  - Mass [None]
  - Pain [None]
